FAERS Safety Report 10528456 (Version 1)
Quarter: 2014Q4

REPORT INFORMATION
  Report Type: Spontaneous
  Country: US (occurrence: None)
  Receive Date: 20141016
  Receipt Date: 20141016
  Transmission Date: 20150528
  Serious: No
  Sender: FDA-Public Use
  Company Number: None

PATIENT
  Age: 70 Year
  Sex: Male
  Weight: 92.6 kg

DRUGS (1)
  1. IPILIMUMAB [Suspect]
     Active Substance: IPILIMUMAB
     Indication: ADRENAL INSUFFICIENCY
     Dosage: 275 MG ?OTHER?IV
     Route: 042
     Dates: start: 20140528, end: 20140804

REACTIONS (1)
  - Adrenal insufficiency [None]

NARRATIVE: CASE EVENT DATE: 20140804
